FAERS Safety Report 9842346 (Version 1)
Quarter: 2014Q1

REPORT INFORMATION
  Report Type: Spontaneous
  Country: US (occurrence: US)
  Receive Date: 20140124
  Receipt Date: 20140124
  Transmission Date: 20141002
  Serious: Yes (Congenital Anomaly)
  Sender: FDA-Public Use
  Company Number: US-FRI-1000053015

PATIENT
  Age: 0 Day
  Sex: Female

DRUGS (1)
  1. LEXAPRO [Suspect]
     Route: 064

REACTIONS (9)
  - Atrial septal defect [Unknown]
  - Ebstein^s anomaly [Unknown]
  - Congenital pulmonary valve atresia [Unknown]
  - Congenital tricuspid valve atresia [Unknown]
  - Tricuspid valve incompetence [Unknown]
  - Hypoplastic right heart syndrome [Unknown]
  - Pulmonary valve stenosis [Unknown]
  - Palatal disorder [Unknown]
  - Speech disorder [Unknown]
